FAERS Safety Report 15683547 (Version 1)
Quarter: 2018Q4

REPORT INFORMATION
  Report Type: Report from Study
  Country: IT (occurrence: IT)
  Receive Date: 20181204
  Receipt Date: 20181204
  Transmission Date: 20190205
  Serious: Yes (Hospitalization)
  Sender: FDA-Public Use
  Company Number: IT-TEVA-2018-IT-981335

PATIENT
  Age: 44 Year
  Sex: Female

DRUGS (11)
  1. EPIRUBICINA AHCL [Suspect]
     Active Substance: EPIRUBICIN
     Route: 042
     Dates: start: 20180501
  2. ZARZIO 30 MU/0.5 ML SOLUTION FOR INJECTION OR INFUSION IN PRE-FILLED S [Concomitant]
  3. ONDANSETRON HYDROCHLORIDE. [Concomitant]
     Active Substance: ONDANSETRON HYDROCHLORIDE
  4. DELTACORTENE [Concomitant]
     Active Substance: PREDNISONE
  5. MYCOSTATIN [Concomitant]
     Active Substance: NYSTATIN
  6. DOCETAXEL. [Suspect]
     Active Substance: DOCETAXEL
     Route: 065
     Dates: start: 20180501
  7. TACHIDOL [Concomitant]
     Active Substance: ACETAMINOPHEN\CODEINE PHOSPHATE
  8. LANSOX [Concomitant]
     Active Substance: LANSOPRAZOLE
     Route: 065
  9. PLASIL [Concomitant]
     Active Substance: METOCLOPRAMIDE HYDROCHLORIDE
  10. ZEFFIX 100 MG FILM-COATED TABLETS [Concomitant]
  11. AMOXICILLIN. [Concomitant]
     Active Substance: AMOXICILLIN
     Dates: end: 20180910

REACTIONS (1)
  - Pharyngotonsillitis [Recovering/Resolving]

NARRATIVE: CASE EVENT DATE: 20180905
